FAERS Safety Report 19432585 (Version 2)
Quarter: 2021Q2

REPORT INFORMATION
  Report Type: Spontaneous
  Country: None (occurrence: US)
  Receive Date: 20210618
  Receipt Date: 20210622
  Transmission Date: 20210717
  Serious: Yes (Death)
  Sender: FDA-Public Use
  Company Number: US-ITALFARMACO SPA-2112853

PATIENT
  Age: 59 Year
  Sex: Female

DRUGS (20)
  1. VITAMIN E [Concomitant]
     Active Substance: .ALPHA.-TOCOPHEROL
  2. THIAMINE HYDROCHLORIDE. [Concomitant]
     Active Substance: THIAMINE HYDROCHLORIDE
  3. ASPIRIN. [Concomitant]
     Active Substance: ASPIRIN
  4. ISOSORBIDE MONONITRATE. [Concomitant]
     Active Substance: ISOSORBIDE MONONITRATE
  5. TIGLUTIK [Suspect]
     Active Substance: RILUZOLE
     Indication: AMYOTROPHIC LATERAL SCLEROSIS
     Route: 048
     Dates: start: 20200417
  6. DOCUSATE SODIUM. [Concomitant]
     Active Substance: DOCUSATE SODIUM
  7. AMITRIPTYLINE HYDROCHLORIDE. [Concomitant]
     Active Substance: AMITRIPTYLINE HYDROCHLORIDE
  8. SENNA [Concomitant]
     Active Substance: SENNA LEAF\SENNOSIDES\SENNOSIDES A AND B
  9. PHOSPHATIDYLSERINE [Concomitant]
     Active Substance: PHOSPHATIDYL SERINE
  10. FOLIC ACID. [Concomitant]
     Active Substance: FOLIC ACID
  11. MAGNESIUM CITRATE. [Concomitant]
     Active Substance: MAGNESIUM CITRATE
  12. BIOTIN [Concomitant]
     Active Substance: BIOTIN
  13. VITAMIN D [Concomitant]
     Active Substance: VITAMIN D NOS
  14. CALCIUM [Concomitant]
     Active Substance: CALCIUM
  15. OMEPRAZOLE. [Concomitant]
     Active Substance: OMEPRAZOLE
  16. AMLODIPINE [Concomitant]
     Active Substance: AMLODIPINE BESYLATE
  17. LOPRESSOR [Concomitant]
     Active Substance: METOPROLOL TARTRATE
  18. OMEGA III [Concomitant]
  19. MULTIVITAMIN [Concomitant]
     Active Substance: VITAMINS
  20. BACLOFEN. [Concomitant]
     Active Substance: BACLOFEN

REACTIONS (1)
  - Urinary tract infection [Fatal]
